FAERS Safety Report 21451225 (Version 1)
Quarter: 2022Q4

REPORT INFORMATION
  Report Type: Report from Study
  Country: CA (occurrence: CA)
  Receive Date: 20221013
  Receipt Date: 20221013
  Transmission Date: 20230113
  Serious: Yes (Other)
  Sender: FDA-Public Use
  Company Number: CA-MYLANLABS-2022M1113673

PATIENT
  Age: 27 Year

DRUGS (1)
  1. HULIO [Suspect]
     Active Substance: ADALIMUMAB-FKJP
     Indication: Psoriatic arthropathy
     Dosage: UNK
     Route: 065

REACTIONS (2)
  - Hepatic fibrosis [Unknown]
  - Therapy interrupted [Unknown]
